FAERS Safety Report 9048579 (Version 1)
Quarter: 2013Q1

REPORT INFORMATION
  Report Type: Spontaneous
  Country: US (occurrence: None)
  Receive Date: 20130130
  Receipt Date: 20130130
  Transmission Date: 20140127
  Serious: Yes (Hospitalization)
  Sender: FDA-Public Use
  Company Number: None

PATIENT
  Age: 94 Year
  Sex: Male
  Weight: 68.9 kg

DRUGS (13)
  1. NTG PATCHCES [Suspect]
     Indication: CORONARY ARTERY DISEASE
     Dosage: 1 PATCH?CHRONIC
     Route: 061
  2. NORCO [Suspect]
     Indication: PAIN
     Dosage: PRN?CHRONIC
     Route: 048
  3. ONDANSETRON [Concomitant]
  4. DOCUSATE SODIUM [Concomitant]
  5. LISINOPRIL [Concomitant]
  6. MVI [Concomitant]
  7. ASA [Concomitant]
  8. LASIX [Concomitant]
  9. CHOLECALCIFEROL [Concomitant]
  10. KCL [Concomitant]
  11. DUTASTERIDE [Concomitant]
  12. CARVEDILOL [Concomitant]
  13. OMEPRAZOLE [Concomitant]

REACTIONS (7)
  - Unresponsive to stimuli [None]
  - Renal failure acute [None]
  - Blood pressure fluctuation [None]
  - Atrial fibrillation [None]
  - Asthenia [None]
  - Asthenia [None]
  - Encephalopathy [None]
